FAERS Safety Report 5034625-X (Version None)
Quarter: 2006Q2

REPORT INFORMATION
  Report Type: 
  Country: None (occurrence: None)
  Receive Date: 20060621
  Receipt Date: 20060613
  Transmission Date: 20061013
  Serious: Yes (Hospitalization)
  Sender: FDA-Public Use
  Company Number: 2006-06-0217

PATIENT
  Age: 54 Year
  Sex: Male

DRUGS (4)
  1. PEGASYS [Suspect]
     Indication: HEPATITIS C
  2. COPEGUS [Suspect]
     Indication: HEPATITIS C
  3. METFORMIN [Concomitant]
  4. GLICLAZIDE [Concomitant]

REACTIONS (14)
  - ASTHENIA [None]
  - BACK PAIN [None]
  - BLOOD UREA INCREASED [None]
  - DEHYDRATION [None]
  - DIARRHOEA [None]
  - DYSURIA [None]
  - ENCEPHALOPATHY [None]
  - INFLAMMATION [None]
  - LABORATORY TEST ABNORMAL [None]
  - LIVER DISORDER [None]
  - OEDEMA PERIPHERAL [None]
  - TACHYCARDIA [None]
  - URINARY TRACT INFECTION [None]
  - UROSEPSIS [None]
